FAERS Safety Report 24853789 (Version 1)
Quarter: 2025Q1

REPORT INFORMATION
  Report Type: Spontaneous
  Country: CA (occurrence: CA)
  Receive Date: 20250117
  Receipt Date: 20250117
  Transmission Date: 20250409
  Serious: Yes (Other)
  Sender: CELLTRION
  Company Number: CA-PFIZER INC-202400329392

PATIENT

DRUGS (5)
  1. INFLECTRA [Suspect]
     Active Substance: INFLIXIMAB-DYYB
     Indication: Ankylosing spondylitis
     Route: 042
     Dates: start: 20150226, end: 20190429
  2. INFLECTRA [Suspect]
     Active Substance: INFLIXIMAB-DYYB
     Route: 042
     Dates: start: 20190625
  3. INFLECTRA [Suspect]
     Active Substance: INFLIXIMAB-DYYB
     Route: 042
     Dates: start: 20241120
  4. ALENDRONATE [Concomitant]
     Active Substance: ALENDRONATE SODIUM
     Indication: Osteoarthritis
     Dosage: 70 MG, WEEKLY
     Route: 065
  5. METHOTREXATE [Concomitant]
     Active Substance: METHOTREXATE
     Indication: Therapeutic response increased
     Route: 065
     Dates: start: 20171022

REACTIONS (5)
  - Diabetes mellitus [Unknown]
  - Musculoskeletal pain [Recovering/Resolving]
  - Wound [Recovering/Resolving]
  - Acne [Recovering/Resolving]
  - Blood cholesterol abnormal [Unknown]

NARRATIVE: CASE EVENT DATE: 20240101
